FAERS Safety Report 6828328-6 (Version None)
Quarter: 2010Q3

REPORT INFORMATION
  Report Type: 
  Country: None (occurrence: None)
  Receive Date: 20100708
  Receipt Date: 20100708
  Transmission Date: 20110219
  Serious: No
  Sender: FDA-Public Use
  Company Number: None

PATIENT
  Age: 76 Year
  Sex: Male

DRUGS (1)
  1. DROZOLAMIDE/TIMOLOL OPTHALMIC SOLUTION HI-TECH [Suspect]
     Route: 047

REACTIONS (2)
  - EYE DISORDER [None]
  - PRODUCT SUBSTITUTION ISSUE [None]
